FAERS Safety Report 7456941-4 (Version None)
Quarter: 2011Q1

REPORT INFORMATION
  Report Type: 
  Country: None (occurrence: None)
  Receive Date: 20110302
  Receipt Date: 20101216
  Transmission Date: 20110831
  Serious: Yes (Other)
  Sender: FDA-Public Use
  Company Number: 023978

PATIENT
  Sex: Male
  Weight: 73 kg

DRUGS (1)
  1. CIMZIA [Suspect]
     Indication: CROHN'S DISEASE
     Dosage: (400 MG INDUCTION DOSE SUBCUTANEOUS)
     Route: 058
     Dates: start: 20101203, end: 20101201

REACTIONS (1)
  - NASOPHARYNGITIS [None]
